FAERS Safety Report 5336353-X (Version None)
Quarter: 2007Q2

REPORT INFORMATION
  Report Type: 
  Country: None (occurrence: None)
  Receive Date: 20070523
  Receipt Date: 20070516
  Transmission Date: 20071010
  Serious: Yes (Hospitalization)
  Sender: FDA-Public Use
  Company Number: GXBR2007US01045

PATIENT
  Age: 50 Year
  Sex: Female
  Weight: 56.7 kg

DRUGS (4)
  1. ITRACONAZOLE CAPSULES (NGX)(ITRACONAZOLE) HARD-GELATIN CAPSULE [Suspect]
     Indication: SINUSITIS
     Dosage: 100 MG, BID, ORAL
     Route: 048
     Dates: start: 20070504, end: 20070506
  2. SYNTHROID [Concomitant]
  3. ASPIRIN [Concomitant]
  4. ESTRADIOL [Concomitant]

REACTIONS (3)
  - DYSPNOEA [None]
  - OXYGEN SATURATION DECREASED [None]
  - RASH [None]
